FAERS Safety Report 22645363 (Version 1)
Quarter: 2023Q2

REPORT INFORMATION
  Report Type: Spontaneous
  Country: US (occurrence: None)
  Receive Date: 20230626
  Receipt Date: 20230626
  Transmission Date: 20230722
  Serious: Yes (Other)
  Sender: FDA-Public Use
  Company Number: None

PATIENT
  Age: 34 Year
  Sex: Female
  Weight: 133.2 kg

DRUGS (3)
  1. NOVOLIN N [Suspect]
     Active Substance: INSULIN HUMAN
     Indication: Gestational diabetes
     Dosage: OTHER QUANTITY : 2 INJECTION(S);?FREQUENCY : AT BEDTIME;?
     Route: 058
  2. VITAMINS [Concomitant]
     Active Substance: VITAMINS
  3. ASPIRIN [Concomitant]
     Active Substance: ASPIRIN

REACTIONS (7)
  - Exposure during pregnancy [None]
  - Blood glucose increased [None]
  - Dizziness [None]
  - Fatigue [None]
  - Feeling abnormal [None]
  - Expired product administered [None]
  - Product dispensing error [None]

NARRATIVE: CASE EVENT DATE: 20230625
